FAERS Safety Report 15554275 (Version 1)
Quarter: 2018Q4

REPORT INFORMATION
  Report Type: Spontaneous
  Country: US (occurrence: US)
  Receive Date: 20181025
  Receipt Date: 20181025
  Transmission Date: 20190205
  Serious: Yes (Other)
  Sender: FDA-Public Use
  Company Number: None

PATIENT
  Age: 48 Year
  Sex: Female

DRUGS (1)
  1. REMICADE [Suspect]
     Active Substance: INFLIXIMAB
     Indication: PSORIASIS
     Dates: start: 20170801, end: 20180801

REACTIONS (3)
  - Nodule [None]
  - Bacterial infection [None]
  - Rash [None]

NARRATIVE: CASE EVENT DATE: 20170801
